FAERS Safety Report 4779941-1 (Version None)
Quarter: 2005Q3

REPORT INFORMATION
  Report Type: 
  Country: None (occurrence: None)
  Receive Date: 20050927
  Receipt Date: 20050922
  Transmission Date: 20060218
  Serious: Yes (Other)
  Sender: FDA-Public Use
  Company Number: CA-GLAXOSMITHKLINE-A0575670A

PATIENT
  Age: 62 Year
  Sex: Male

DRUGS (1)
  1. ZOVIRAX [Suspect]
     Dosage: 1G THREE TIMES PER DAY
     Route: 048

REACTIONS (5)
  - ABNORMAL DREAMS [None]
  - CONFUSIONAL STATE [None]
  - DYSARTHRIA [None]
  - HALLUCINATION [None]
  - NEUROLOGICAL SYMPTOM [None]
